FAERS Safety Report 4601946-1 (Version None)
Quarter: 2005Q2

REPORT INFORMATION
  Report Type: 
  Country: None (occurrence: None)
  Receive Date: 20050215
  Receipt Date: 20041210
  Transmission Date: 20051028
  Serious: Yes (Other)
  Sender: FDA-Public Use
  Company Number: 388953

PATIENT
  Age: 55 Year
  Sex: 0

DRUGS (5)
  1. PEGASYS [Suspect]
     Indication: HEPATITIS C
  2. COPEGUS [Suspect]
     Indication: HEPATITIS C
     Dosage: ORAL
     Route: 048
  3. WELLBUTRIN [Concomitant]
  4. RITALIN [Concomitant]
  5. ZYPREXA [Concomitant]

REACTIONS (3)
  - BLINDNESS [None]
  - RETINAL EXUDATES [None]
  - RETINAL HAEMORRHAGE [None]
